FAERS Safety Report 12915394 (Version 1)
Quarter: 2016Q4

REPORT INFORMATION
  Report Type: Spontaneous
  Country: US (occurrence: US)
  Receive Date: 20161106
  Receipt Date: 20161106
  Transmission Date: 20170207
  Serious: No
  Sender: FDA-Public Use
  Company Number: US-RELYPSA-RLY2016002837

PATIENT
  Sex: Male

DRUGS (9)
  1. SULFUR. [Concomitant]
     Active Substance: SULFUR
  2. LIDODERM [Concomitant]
     Active Substance: LIDOCAINE
  3. VELTASSA [Suspect]
     Active Substance: PATIROMER
     Indication: HYPERKALAEMIA
     Dosage: 8.4 G, UNKNOWN
     Route: 065
     Dates: start: 201607, end: 201609
  4. FLOMAX [Concomitant]
     Active Substance: TAMSULOSIN HYDROCHLORIDE
  5. AVODART [Concomitant]
     Active Substance: DUTASTERIDE
  6. NAPROSYN [Concomitant]
     Active Substance: NAPROXEN
  7. VESICARE [Concomitant]
     Active Substance: SOLIFENACIN SUCCINATE
  8. LEVAQUIN [Concomitant]
     Active Substance: LEVOFLOXACIN
  9. BACTRIM [Concomitant]
     Active Substance: SULFAMETHOXAZOLE\TRIMETHOPRIM

REACTIONS (1)
  - Constipation [Unknown]

NARRATIVE: CASE EVENT DATE: 2016
